FAERS Safety Report 8772683 (Version 2)
Quarter: 2013Q1

REPORT INFORMATION
  Report Type: Spontaneous
  Country: US (occurrence: US)
  Receive Date: 20120905
  Receipt Date: 20130119
  Transmission Date: 20140127
  Serious: No
  Sender: FDA-Public Use
  Company Number: US-009507513-1208USA000146

PATIENT
  Age: 62 Year
  Sex: Female

DRUGS (7)
  1. SINEMET CR [Suspect]
     Indication: PARKINSON^S DISEASE
     Dosage: UNK UNK, QPM
     Route: 048
  2. SINEMET [Concomitant]
     Dosage: UNK, QAM
  3. NEURONTIN [Concomitant]
  4. CYANOCOBALAMIN [Concomitant]
  5. PROZAC [Concomitant]
  6. VICODIN [Concomitant]
  7. KLONOPIN [Concomitant]

REACTIONS (3)
  - Somnolence [Not Recovered/Not Resolved]
  - Depression [Not Recovered/Not Resolved]
  - Nausea [Not Recovered/Not Resolved]
